FAERS Safety Report 17437086 (Version 1)
Quarter: 2020Q1

REPORT INFORMATION
  Report Type: Spontaneous
  Country: CA (occurrence: CA)
  Receive Date: 20200219
  Receipt Date: 20200219
  Transmission Date: 20200409
  Serious: Yes (Other)
  Sender: FDA-Public Use
  Company Number: CA-TEVA-2020-CA-1185671

PATIENT
  Age: 70 Year
  Sex: Female

DRUGS (19)
  1. SANDOSTATIN [Suspect]
     Active Substance: OCTREOTIDE ACETATE
     Indication: ADENOCARCINOMA PANCREAS
     Route: 030
  2. IRBESARTAN. [Concomitant]
     Active Substance: IRBESARTAN
     Dosage: 150 MILLIGRAM DAILY;
     Route: 048
  3. BUSCOPAN [Concomitant]
     Active Substance: BUTYLSCOPOLAMINE BROMIDE
     Dosage: 40 MILLIGRAM DAILY;
     Route: 048
  4. FENOFIBRATE. [Concomitant]
     Active Substance: FENOFIBRATE
     Indication: PRODUCT USED FOR UNKNOWN INDICATION
     Dosage: 160 MILLIGRAM DAILY;
     Route: 048
  5. HYDROMORPHONE [Concomitant]
     Active Substance: HYDROMORPHONE
     Route: 048
  6. INSULIN GLARGINE [Concomitant]
     Active Substance: INSULIN GLARGINE
     Indication: TYPE 2 DIABETES MELLITUS
  7. LOPERAMIDE [Concomitant]
     Active Substance: LOPERAMIDE
     Indication: DIARRHOEA
     Dosage: 16 MILLIGRAM DAILY;
     Route: 048
  8. OCTREOTIDE ACETATE. [Suspect]
     Active Substance: OCTREOTIDE ACETATE
     Indication: ADENOCARCINOMA PANCREAS
     Dosage: 300 MICROGRAM DAILY;
     Route: 058
  9. HYDROMORPHONE [Concomitant]
     Active Substance: HYDROMORPHONE
     Dosage: 25 MILLIGRAM DAILY;
     Route: 065
  10. PANCRELIPASE. [Concomitant]
     Active Substance: PANCRELIPASE
     Route: 048
  11. GEMCITABINE HYDROCHLORIDE. [Suspect]
     Active Substance: GEMCITABINE HYDROCHLORIDE
     Indication: ADENOCARCINOMA PANCREAS
     Route: 065
  12. INSULIN ASPART [Concomitant]
     Active Substance: INSULIN ASPART
     Indication: TYPE 2 DIABETES MELLITUS
     Route: 065
  13. CHOLESTYRAMINE. [Concomitant]
     Active Substance: CHOLESTYRAMINE
     Indication: DIARRHOEA
     Dosage: 4 GRAM DAILY;
     Route: 048
  14. ESOMEPRAZOLE. [Concomitant]
     Active Substance: ESOMEPRAZOLE MAGNESIUM
     Dosage: 200 MILLIGRAM DAILY;
     Route: 048
  15. HYDROMORPHONE [Concomitant]
     Active Substance: HYDROMORPHONE
     Dosage: 10 MILLIGRAM DAILY;
     Route: 065
  16. HYDROMORPHONE [Concomitant]
     Active Substance: HYDROMORPHONE
     Dosage: 55 MILLIGRAM DAILY;
     Route: 065
  17. OSELTAMIVIR [Concomitant]
     Active Substance: OSELTAMIVIR
     Indication: INFLUENZA
     Dosage: 150 MILLIGRAM DAILY;
     Route: 048
  18. BIFIDOBACTERIUM LONGUM;LACTOBACILLUS ACIDOPHILUS [Concomitant]
     Active Substance: BIFIDOBACTERIUM LONGUM\LACTOBACILLUS ACIDOPHILUS
     Indication: DYSBIOSIS
     Route: 065
  19. HYDROMORPHONE [Concomitant]
     Active Substance: HYDROMORPHONE
     Dosage: 6 MILLIGRAM DAILY;
     Route: 048

REACTIONS (2)
  - Hypoglycaemia [Unknown]
  - Neoplasm progression [Unknown]
